FAERS Safety Report 5501017-6 (Version None)
Quarter: 2007Q4

REPORT INFORMATION
  Report Type: 
  Country: None (occurrence: None)
  Receive Date: 20071029
  Receipt Date: 20071019
  Transmission Date: 20080405
  Serious: Yes (Other)
  Sender: FDA-Public Use
  Company Number: PHEH2007US08035

PATIENT
  Sex: Female
  Weight: 74.603 kg

DRUGS (2)
  1. ZELNORM [Suspect]
     Route: 048
  2. ESTRATEST [Concomitant]

REACTIONS (4)
  - ANGINA PECTORIS [None]
  - BACTERIAL CULTURE POSITIVE [None]
  - CHEST PAIN [None]
  - HERNIA [None]
